FAERS Safety Report 13821505 (Version 2)
Quarter: 2017Q3

REPORT INFORMATION
  Report Type: Spontaneous
  Country: US (occurrence: US)
  Receive Date: 20170801
  Receipt Date: 20170807
  Transmission Date: 20171127
  Serious: Yes (Hospitalization, Other)
  Sender: FDA-Public Use
  Company Number: US-SUNOVION-2017SUN000528

PATIENT
  Sex: Female

DRUGS (13)
  1. SEROQUEL [Concomitant]
     Active Substance: QUETIAPINE FUMARATE
  2. DEPAKOTE [Concomitant]
     Active Substance: DIVALPROEX SODIUM
  3. LATUDA [Suspect]
     Active Substance: LURASIDONE HYDROCHLORIDE
     Dosage: 40 UNK, UNK
     Route: 048
  4. DIAZEPAM. [Concomitant]
     Active Substance: DIAZEPAM
     Dosage: 5 MG, UNK
     Route: 065
  5. WELLBUTRIN [Concomitant]
     Active Substance: BUPROPION HYDROCHLORIDE
  6. LATUDA [Suspect]
     Active Substance: LURASIDONE HYDROCHLORIDE
     Dosage: 160 UNK, UNK
     Route: 048
  7. LATUDA [Suspect]
     Active Substance: LURASIDONE HYDROCHLORIDE
     Indication: BIPOLAR I DISORDER
     Dosage: 120 MG, UNK
     Route: 048
  8. LAMOTRIGINE. [Concomitant]
     Active Substance: LAMOTRIGINE
     Dosage: 200 MG, UNK
     Route: 065
  9. INVEGA [Concomitant]
     Active Substance: PALIPERIDONE
  10. ZYPREXA [Concomitant]
     Active Substance: OLANZAPINE
  11. ABILIFY [Concomitant]
     Active Substance: ARIPIPRAZOLE
  12. PROZAC [Concomitant]
     Active Substance: FLUOXETINE HYDROCHLORIDE
  13. CLONAZEPAM. [Concomitant]
     Active Substance: CLONAZEPAM
     Dosage: 0.5 MG, UNK

REACTIONS (18)
  - Androgens abnormal [Unknown]
  - Depression [Unknown]
  - Weight increased [Unknown]
  - Amenorrhoea [Unknown]
  - Mania [Unknown]
  - Boredom [Unknown]
  - Mood altered [Unknown]
  - Bipolar I disorder [Unknown]
  - Crying [Unknown]
  - Suicidal ideation [Unknown]
  - Acne [Unknown]
  - Blood prolactin increased [Unknown]
  - Decreased appetite [Unknown]
  - Back disorder [Unknown]
  - Drug ineffective [Unknown]
  - Frustration tolerance decreased [Unknown]
  - Anger [Unknown]
  - Feeling abnormal [Unknown]
